FAERS Safety Report 10180385 (Version 1)
Quarter: 2014Q2

REPORT INFORMATION
  Report Type: Spontaneous
  Country: US (occurrence: US)
  Receive Date: 20140519
  Receipt Date: 20140519
  Transmission Date: 20141212
  Serious: No
  Sender: FDA-Public Use
  Company Number: US-AMGEN INC.-USASP2013076343

PATIENT
  Age: 51 Year
  Sex: Female

DRUGS (15)
  1. PROLIA [Suspect]
     Indication: OSTEOPOROSIS
     Dosage: UNK
     Route: 065
     Dates: start: 20130920
  2. PROLIA [Suspect]
     Indication: OSTEOPENIA
  3. SYMBICORT [Concomitant]
  4. PROAIR                             /00139502/ [Concomitant]
     Dosage: UNK UNK, AS NECESSARY
  5. ALBUTEROL SULFATE [Concomitant]
     Dosage: UNK UNK, AS NECESSARY
  6. SINGULAIR [Concomitant]
     Dosage: UNK UNK, QD
  7. CRESTOR [Concomitant]
  8. DILTIAZEM [Concomitant]
     Dosage: UNK
  9. EFFEXOR [Concomitant]
  10. DIAZEPAM [Concomitant]
     Dosage: UNK UNK, AS NECESSARY
  11. FLONASE                            /00908302/ [Concomitant]
     Dosage: UNK, BID
  12. RANITIDINE [Concomitant]
     Dosage: UNK, BID
  13. LORTAB                             /00607101/ [Concomitant]
     Dosage: UNK UNK, AS NECESSARY
  14. CALTRATE D                         /00944201/ [Concomitant]
  15. LISINOPRIL [Concomitant]

REACTIONS (6)
  - Skin exfoliation [Unknown]
  - Rash pustular [Unknown]
  - Purulent discharge [Unknown]
  - Wound complication [Unknown]
  - Secretion discharge [Unknown]
  - Breast pain [Unknown]
